FAERS Safety Report 22248984 (Version 1)
Quarter: 2023Q2

REPORT INFORMATION
  Report Type: Spontaneous
  Country: US (occurrence: US)
  Receive Date: 20230425
  Receipt Date: 20230425
  Transmission Date: 20230721
  Serious: Yes (Hospitalization, Other)
  Sender: FDA-Public Use
  Company Number: US-AMGEN-USASP2023069097

PATIENT
  Age: 67 Year
  Sex: Male

DRUGS (1)
  1. REPATHA [Suspect]
     Active Substance: EVOLOCUMAB
     Indication: Blood cholesterol abnormal
     Dosage: 140 MILLIGRAM
     Route: 065

REACTIONS (6)
  - Pneumothorax [Unknown]
  - Asthma [Unknown]
  - Dermatitis allergic [Unknown]
  - Product storage error [Unknown]
  - Intercepted product administration error [Unknown]
  - Mole excision [Unknown]

NARRATIVE: CASE EVENT DATE: 20220610
